FAERS Safety Report 21881072 (Version 1)
Quarter: 2023Q1

REPORT INFORMATION
  Report Type: Spontaneous
  Country: US (occurrence: US)
  Receive Date: 20230118
  Receipt Date: 20230118
  Transmission Date: 20230418
  Serious: No
  Sender: FDA-Public Use
  Company Number: US-AMGEN-USASP2023006740

PATIENT
  Age: 93 Year
  Sex: Male

DRUGS (2)
  1. ENBREL [Suspect]
     Active Substance: ETANERCEPT
     Indication: Off label use
     Dosage: 50 MILLIGRAM, QWK
     Route: 058
     Dates: start: 20221222, end: 20221222
  2. ENBREL [Suspect]
     Active Substance: ETANERCEPT
     Indication: Polymyalgia rheumatica
     Dosage: 50 MILLIGRAM, QWK
     Route: 058

REACTIONS (3)
  - Pain of skin [Not Recovered/Not Resolved]
  - Pruritus [Not Recovered/Not Resolved]
  - Off label use [Unknown]

NARRATIVE: CASE EVENT DATE: 20221222
